FAERS Safety Report 4681357-3 (Version None)
Quarter: 2005Q2

REPORT INFORMATION
  Report Type: 
  Country: None (occurrence: None)
  Receive Date: 20050601
  Receipt Date: 20050520
  Transmission Date: 20051028
  Serious: Yes (Death, Life-Threatening, Other)
  Sender: FDA-Public Use
  Company Number: EM2005-0258

PATIENT
  Age: 66 Year
  Sex: Male

DRUGS (4)
  1. PROLEUKIN [Suspect]
     Indication: RENAL CELL CARCINOMA STAGE UNSPECIFIED
     Dosage: 65.8 MU, Q8H, INTRAVENOUS
     Route: 042
     Dates: start: 20050328, end: 20050330
  2. DOPAMINE (DOPAMINE) [Concomitant]
  3. INDOCIN [Concomitant]
  4. PEPCID [Concomitant]

REACTIONS (4)
  - ATRIAL FIBRILLATION [None]
  - CARDIAC FAILURE CONGESTIVE [None]
  - PULMONARY OEDEMA [None]
  - RENAL FAILURE ACUTE [None]
